FAERS Safety Report 5156953-X (Version None)
Quarter: 2006Q4

REPORT INFORMATION
  Report Type: 
  Country: None (occurrence: None)
  Receive Date: 20061124
  Receipt Date: 20061023
  Transmission Date: 20070319
  Serious: Yes (Hospitalization)
  Sender: FDA-Public Use
  Company Number: GR-ROCHE-468286

PATIENT
  Age: 40 Year
  Sex: Female

DRUGS (5)
  1. PEG-INTERFERON A-2A (RO 25-8310) [Suspect]
     Route: 058
     Dates: start: 20060720, end: 20060927
  2. RIBAVIRIN [Suspect]
     Route: 048
     Dates: start: 20060717, end: 20060927
  3. BLINDED THYMOSIN ALFA 1 [Suspect]
     Route: 058
     Dates: start: 20060717, end: 20060925
  4. THYROHORMONE [Concomitant]
     Dosage: STRENGTH REPORTED AS O.1 (NO UNIT PROVIDED) DOSE REPORTED AS A HALF TABLET PER DAY.
     Dates: start: 20060809
  5. ZOLOFT [Concomitant]
     Route: 048
     Dates: start: 20060327

REACTIONS (1)
  - THROMBOSIS [None]
